FAERS Safety Report 25430112 (Version 1)
Quarter: 2025Q2

REPORT INFORMATION
  Report Type: Spontaneous
  Country: US (occurrence: US)
  Receive Date: 20250612
  Receipt Date: 20250612
  Transmission Date: 20250717
  Serious: No
  Sender: TAKEDA
  Company Number: US-TAKEDA-2025TUS053115

PATIENT
  Age: 36 Year
  Sex: Female

DRUGS (7)
  1. LIALDA [Suspect]
     Active Substance: MESALAMINE
     Indication: Colitis ulcerative
  2. PENTASA [Suspect]
     Active Substance: MESALAMINE
     Indication: Colitis ulcerative
  3. ENTYVIO [Suspect]
     Active Substance: VEDOLIZUMAB
     Indication: Colitis ulcerative
  4. ENTYVIO [Suspect]
     Active Substance: VEDOLIZUMAB
  5. VELSIPITY [Suspect]
     Active Substance: ETRASIMOD ARGININE
     Indication: Product used for unknown indication
  6. HYDROCORTISONE [Concomitant]
     Active Substance: HYDROCORTISONE
     Indication: Reaction to excipient
  7. BENADRYL [Concomitant]
     Active Substance: DIPHENHYDRAMINE HYDROCHLORIDE

REACTIONS (7)
  - Abdominal discomfort [Unknown]
  - Depressive symptom [Unknown]
  - Injection site rash [Not Recovered/Not Resolved]
  - Cellulitis [Not Recovered/Not Resolved]
  - Rash pruritic [Not Recovered/Not Resolved]
  - Rash papular [Not Recovered/Not Resolved]
  - Injection site erythema [Not Recovered/Not Resolved]
